FAERS Safety Report 13612170 (Version 2)
Quarter: 2017Q3

REPORT INFORMATION
  Report Type: Spontaneous
  Country: US (occurrence: US)
  Receive Date: 20170605
  Receipt Date: 20170714
  Transmission Date: 20171127
  Serious: Yes (Hospitalization, Other)
  Sender: FDA-Public Use
  Company Number: US-PFIZER INC-2017242355

PATIENT
  Age: 55 Year
  Sex: Female

DRUGS (7)
  1. SOMA [Concomitant]
     Active Substance: CARISOPRODOL
     Dosage: 1200 MG, DAILY
  2. LYRICA [Suspect]
     Active Substance: PREGABALIN
     Indication: BACK DISORDER
  3. CHANTIX [Concomitant]
     Active Substance: VARENICLINE TARTRATE
     Dosage: 2 MG, DAILY
  4. LYRICA [Suspect]
     Active Substance: PREGABALIN
     Indication: LUNG NEOPLASM MALIGNANT
     Dosage: 350 MG, UNK
  5. CHANTIX [Concomitant]
     Active Substance: VARENICLINE TARTRATE
     Dosage: 1 MG, 2X/DAY
  6. LYRICA [Suspect]
     Active Substance: PREGABALIN
     Indication: ARTHRITIS
  7. OXYCODONE [Concomitant]
     Active Substance: OXYCODONE
     Dosage: 30 MG, DAILY

REACTIONS (4)
  - Drug intolerance [Unknown]
  - Product use in unapproved indication [Unknown]
  - Fall [Not Recovered/Not Resolved]
  - Loss of consciousness [Not Recovered/Not Resolved]
